FAERS Safety Report 8916693 (Version 1)
Quarter: 2012Q4

REPORT INFORMATION
  Report Type: 
  Country: SE (occurrence: SE)
  Receive Date: 20121120
  Receipt Date: 20121120
  Transmission Date: 20130627
  Serious: Yes (Hospitalization)
  Sender: FDA-Public Use
  Company Number: SE-PFIZER INC-2012287722

PATIENT
  Age: 64 Year
  Sex: Male
  Weight: 71 kg

DRUGS (6)
  1. GENOTROPIN [Suspect]
     Indication: GROWTH HORMONE DEFICIENCY
     Dosage: 0.2 mg, 1x/day,7 injections/week
     Route: 058
     Dates: start: 20050101
  2. LIPITOR [Concomitant]
     Indication: HYPERLIPIDAEMIA
     Dosage: UNK
     Dates: start: 19940211
  3. LEVOTHYROXINE [Concomitant]
     Indication: TSH DECREASED
     Dosage: UNK
     Dates: start: 19990312
  4. IMDUR [Concomitant]
     Indication: ANGINA PECTORIS
     Dosage: UNK
     Dates: start: 20000106
  5. TROMBYL [Concomitant]
     Indication: THROMBOSIS
     Dosage: UNK
     Dates: start: 20000106
  6. HYDROCORTISON [Concomitant]
     Indication: ACTH DECREASED
     Dosage: UNK
     Dates: start: 20040303

REACTIONS (1)
  - Cardiac disorder [Unknown]
